FAERS Safety Report 20085462 (Version 3)
Quarter: 2025Q4

REPORT INFORMATION
  Report Type: Report from Study
  Country: US (occurrence: US)
  Receive Date: 20211118
  Receipt Date: 20251105
  Transmission Date: 20260118
  Serious: Yes (Other)
  Sender: AMGEN
  Company Number: US-AMGEN-USASP2021177549

PATIENT
  Age: 77 Year
  Sex: Female

DRUGS (2)
  1. REPATHA [Suspect]
     Active Substance: EVOLOCUMAB
     Indication: Blood cholesterol abnormal
     Dosage: 420 MILLIGRAM, QMO
     Route: 065
     Dates: start: 2022
  2. INSULIN NOS [Concomitant]
     Active Substance: INSULIN NOS
     Dosage: UNK
     Route: 065

REACTIONS (8)
  - Neoplasm malignant [Unknown]
  - Myocardial infarction [Unknown]
  - Cerebrovascular accident [Recovered/Resolved]
  - Knee arthroplasty [Unknown]
  - Fall [Unknown]
  - Incorrect disposal of product [Unknown]
  - Drug dose omission by device [Unknown]
  - Cardiac disorder [Unknown]

NARRATIVE: CASE EVENT DATE: 20211107
